FAERS Safety Report 8949735 (Version 1)
Quarter: 2012Q4

REPORT INFORMATION
  Report Type: Report from Study
  Country: FR (occurrence: FR)
  Receive Date: 20121206
  Receipt Date: 20121206
  Transmission Date: 20130627
  Serious: Yes (Other)
  Sender: FDA-Public Use
  Company Number: FR-ROCHE-1162724

PATIENT
  Age: 71 Year
  Sex: Male

DRUGS (1)
  1. RITUXIMAB [Suspect]
     Indication: RHEUMATOID ARTHRITIS
     Route: 065

REACTIONS (2)
  - Basal cell carcinoma [Unknown]
  - Skin ulcer [Unknown]
